FAERS Safety Report 8485629-6 (Version None)
Quarter: 2012Q3

REPORT INFORMATION
  Report Type: 
  Country: None (occurrence: None)
  Receive Date: 20120703
  Receipt Date: 20120619
  Transmission Date: 20120928
  Serious: No
  Sender: FDA-Public Use
  Company Number: US-JNJFOC-20120611487

PATIENT
  Sex: Female
  Weight: 54.43 kg

DRUGS (4)
  1. FENTANYL-100 [Suspect]
     Indication: PAIN
     Route: 062
     Dates: start: 20120616, end: 20120618
  2. PRILOSEC [Concomitant]
     Indication: DYSPEPSIA
     Route: 048
  3. DILTIAZEM HYDROCHOLORIDE [Concomitant]
     Indication: BLOOD PRESSURE
     Route: 048
  4. ZOCOR [Concomitant]
     Indication: BLOOD CHOLESTEROL
     Route: 048

REACTIONS (4)
  - TREATMENT NONCOMPLIANCE [None]
  - VOMITING [None]
  - DRUG INEFFECTIVE [None]
  - NAUSEA [None]
